FAERS Safety Report 11216714 (Version 1)
Quarter: 2015Q2

REPORT INFORMATION
  Report Type: Report from Study
  Country: US (occurrence: US)
  Receive Date: 20150624
  Receipt Date: 20150624
  Transmission Date: 20150821
  Serious: Yes (Disabling)
  Sender: FDA-Public Use
  Company Number: US-ASTRAZENECA-2015SE42838

PATIENT
  Age: 20664 Day
  Sex: Female
  Weight: 117 kg

DRUGS (2)
  1. JANUVIA [Concomitant]
     Active Substance: SITAGLIPTIN PHOSPHATE
  2. BYDUREON [Suspect]
     Active Substance: EXENATIDE
     Indication: DIABETES MELLITUS
     Route: 058
     Dates: start: 20150401, end: 20150513

REACTIONS (10)
  - Injection site haemorrhage [Unknown]
  - Nausea [Recovering/Resolving]
  - Injection site extravasation [Unknown]
  - Underdose [Unknown]
  - Dyspepsia [Unknown]
  - Product quality issue [Unknown]
  - Injection site pain [Unknown]
  - Constipation [Unknown]
  - Pruritus [Recovering/Resolving]
  - Weight decreased [Unknown]

NARRATIVE: CASE EVENT DATE: 20150505
